FAERS Safety Report 10173007 (Version 2)
Quarter: 2014Q3

REPORT INFORMATION
  Report Type: Report from Study
  Country: BR (occurrence: BR)
  Receive Date: 20140515
  Receipt Date: 20140703
  Transmission Date: 20150326
  Serious: Yes (Death, Hospitalization, Other)
  Sender: FDA-Public Use
  Company Number: PHHY2014BR056702

PATIENT
  Age: 51 Year
  Sex: Female
  Weight: 38 kg

DRUGS (4)
  1. EXJADE [Suspect]
     Active Substance: DEFERASIROX
     Dosage: UNK UKN, UNK
     Dates: start: 201306
  2. HYDREA [Suspect]
     Active Substance: HYDROXYUREA
     Indication: HAEMOGLOBIN INCREASED
     Dosage: 2 DF, DAILY
  3. FOLIC ACID. [Suspect]
     Active Substance: FOLIC ACID
     Indication: ANAEMIA
     Dosage: 2 DF, DAILY
  4. EXJADE [Suspect]
     Active Substance: DEFERASIROX
     Indication: SICKLE CELL ANAEMIA
     Dosage: 2 DF, DAILY
     Dates: start: 1996

REACTIONS (19)
  - Yellow skin [Not Recovered/Not Resolved]
  - Multi-organ failure [Not Recovered/Not Resolved]
  - Duodenal ulcer perforation [Fatal]
  - Pain in extremity [Unknown]
  - Fall [Unknown]
  - Dysstasia [Unknown]
  - Peritonitis [Fatal]
  - Cholelithiasis [Not Recovered/Not Resolved]
  - Skin ulcer [Not Recovered/Not Resolved]
  - Gait disturbance [Unknown]
  - Sepsis [Fatal]
  - Sickle cell anaemia [Fatal]
  - Renal failure [Not Recovered/Not Resolved]
  - Joint injury [Not Recovered/Not Resolved]
  - Anaemia [Unknown]
  - Respiratory arrest [Not Recovered/Not Resolved]
  - Movement disorder [Unknown]
  - Pain [Not Recovered/Not Resolved]
  - Haemoglobin decreased [Unknown]

NARRATIVE: CASE EVENT DATE: 201309
